FAERS Safety Report 24029074 (Version 1)
Quarter: 2024Q2

REPORT INFORMATION
  Report Type: Report from Study
  Country: CA (occurrence: CA)
  Receive Date: 20240628
  Receipt Date: 20240628
  Transmission Date: 20240715
  Serious: No
  Sender: FDA-Public Use
  Company Number: CA-MYLANLABS-2024M1056552

PATIENT
  Sex: Male

DRUGS (1)
  1. EPIPEN [Suspect]
     Active Substance: EPINEPHRINE
     Indication: Arthropod sting
     Dosage: 0.3 MILLIGRAM
     Route: 065

REACTIONS (2)
  - Device failure [Recovered/Resolved]
  - Drug dose omission by device [Recovered/Resolved]
